FAERS Safety Report 25178275 (Version 2)
Quarter: 2025Q2

REPORT INFORMATION
  Report Type: Spontaneous
  Country: US (occurrence: US)
  Receive Date: 20250409
  Receipt Date: 20250520
  Transmission Date: 20250717
  Serious: No
  Sender: GLAXOSMITHKLINE
  Company Number: US-GSK-US2025038341

PATIENT
  Sex: Female
  Weight: 52.16 kg

DRUGS (1)
  1. NUCALA [Suspect]
     Active Substance: MEPOLIZUMAB
     Indication: Product used for unknown indication
     Dates: end: 202412

REACTIONS (4)
  - Wheezing [Unknown]
  - Dyspnoea [Not Recovered/Not Resolved]
  - Productive cough [Unknown]
  - Product dose omission issue [Unknown]
